FAERS Safety Report 9337792 (Version 1)
Quarter: 2013Q2

REPORT INFORMATION
  Report Type: Spontaneous
  Country: US (occurrence: US)
  Receive Date: 20130607
  Receipt Date: 20130607
  Transmission Date: 20140414
  Serious: Yes (Other)
  Sender: FDA-Public Use
  Company Number: US-ASTRAZENECA-2013SE38520

PATIENT
  Age: 51 Year
  Sex: Male
  Weight: 97.5 kg

DRUGS (9)
  1. METOPROLOL SUCCINATE [Suspect]
     Indication: HYPERTENSION
     Route: 048
     Dates: end: 2012
  2. METOPROLOL SUCCINATE [Suspect]
     Indication: HYPERTENSION
     Route: 048
     Dates: start: 2012, end: 2012
  3. METOPROLOL SUCCINATE [Suspect]
     Indication: HYPERTENSION
     Route: 048
     Dates: start: 2012
  4. NEXIUM EERD (DELAYED RELEASE) [Suspect]
     Indication: DYSPEPSIA
     Route: 048
     Dates: end: 201304
  5. DICYCLOMINE [Suspect]
     Indication: ABDOMINAL PAIN UPPER
     Route: 065
     Dates: start: 201304
  6. HYDROCHLOROTHIACIDE [Concomitant]
     Indication: HYPERTENSION
  7. SINGULAIR [Concomitant]
  8. PRAVASTATIN [Concomitant]
     Indication: BLOOD CHOLESTEROL ABNORMAL
  9. BACLOPHEN [Concomitant]

REACTIONS (5)
  - Haemorrhage [Unknown]
  - Urinary tract infection [Recovering/Resolving]
  - Pruritus [Not Recovered/Not Resolved]
  - Diarrhoea [Not Recovered/Not Resolved]
  - Abdominal pain upper [Not Recovered/Not Resolved]
